FAERS Safety Report 12961626 (Version 1)
Quarter: 2016Q4

REPORT INFORMATION
  Report Type: Spontaneous
  Country: JP (occurrence: JP)
  Receive Date: 20161121
  Receipt Date: 20161121
  Transmission Date: 20170207
  Serious: No
  Sender: FDA-Public Use
  Company Number: JP-ELI_LILLY_AND_COMPANY-JP201611004260

PATIENT
  Age: 74 Year
  Sex: Male

DRUGS (2)
  1. ZALUTIA [Suspect]
     Active Substance: TADALAFIL
     Indication: PRODUCT USED FOR UNKNOWN INDICATION
     Dosage: 5 MG, QD
     Route: 048
     Dates: start: 201507, end: 201610
  2. AVOLVE [Concomitant]
     Active Substance: DUTASTERIDE
     Route: 048

REACTIONS (1)
  - Photopsia [Recovered/Resolved]

NARRATIVE: CASE EVENT DATE: 201609
